FAERS Safety Report 4902568-5 (Version None)
Quarter: 2006Q1

REPORT INFORMATION
  Report Type: 
  Country: None (occurrence: None)
  Receive Date: 20060202
  Receipt Date: 20060125
  Transmission Date: 20060701
  Serious: Yes (Other)
  Sender: FDA-Public Use
  Company Number: 2006012661

PATIENT
  Age: 77 Year
  Sex: Male
  Weight: 76 kg

DRUGS (9)
  1. LYRICA [Suspect]
     Indication: CERVICAL ROOT PAIN
     Dosage: 150 MG (75 MG, 2 IN 1 D), ORAL
     Route: 048
     Dates: start: 20051228, end: 20051230
  2. ASPIRIN [Concomitant]
  3. BENDROFLUMETHIAZIDE (BENDROFLUMETHIAZIDE) [Concomitant]
  4. ACETAMINOPHEN [Concomitant]
  5. TAMSULOSIN HCL [Concomitant]
  6. INDOMETHACIN [Concomitant]
  7. CIPROFIBRATE (CIPROFIBRATE) [Concomitant]
  8. CIMETIDINE [Concomitant]
  9. FINASTERIDE [Concomitant]

REACTIONS (5)
  - ASTHENIA [None]
  - CONFUSIONAL STATE [None]
  - DIFFICULTY IN WALKING [None]
  - LOSS OF CONTROL OF LEGS [None]
  - PAIN [None]
